FAERS Safety Report 8839173 (Version 1)
Quarter: 2012Q4

REPORT INFORMATION
  Report Type: 
  Country: BR (occurrence: BR)
  Receive Date: 20121015
  Receipt Date: 20121015
  Transmission Date: 20130627
  Serious: Yes (Disabling)
  Sender: FDA-Public Use
  Company Number: BR-AMGEN-BRASP2012012860

PATIENT
  Age: 53 Year
  Sex: Female
  Weight: 55 kg

DRUGS (6)
  1. ENBREL [Suspect]
     Indication: RHEUMATOID ARTHRITIS
     Dosage: 50 mg, once weekly
     Route: 058
     Dates: start: 201107, end: 201204
  2. METHOTREXATE [Concomitant]
     Dosage: 2.5 mg, UNK
  3. ENDOFOLIN [Concomitant]
     Dosage: 5 mg, UNK
  4. PURAN T4 [Concomitant]
     Dosage: UNK
  5. PREDNISOLONE [Concomitant]
     Dosage: 5 mg, UNK
     Route: 048
     Dates: start: 201112
  6. FOLIC ACID [Concomitant]
     Dosage: 5 mg, qwk
     Route: 048

REACTIONS (3)
  - Synovitis [Recovered/Resolved]
  - Drug ineffective [Unknown]
  - Application site pain [Unknown]
